FAERS Safety Report 7893811-1 (Version None)
Quarter: 2011Q4

REPORT INFORMATION
  Report Type: 
  Country: None (occurrence: None)
  Receive Date: 20111104
  Receipt Date: 20111031
  Transmission Date: 20120403
  Serious: Yes (Hospitalization, Other)
  Sender: FDA-Public Use
  Company Number: US-ABBOTT-11P-163-0863328-00

PATIENT
  Age: 39 Year
  Sex: Female

DRUGS (7)
  1. NORVASC [Concomitant]
     Indication: HYPERTENSION
  2. EFFEXOR XR [Concomitant]
     Indication: ANXIETY
  3. EFFEXOR XR [Concomitant]
     Indication: DEPRESSION
  4. DIOVAN [Concomitant]
     Indication: HYPERTENSION
  5. HUMIRA [Suspect]
     Indication: PSORIASIS
     Dates: start: 20110201
  6. AMARYL [Concomitant]
     Indication: DIABETES MELLITUS
  7. VITAMIN D [Concomitant]
     Indication: PRODUCT USED FOR UNKNOWN INDICATION

REACTIONS (5)
  - PSORIASIS [None]
  - GASTROENTERITIS VIRAL [None]
  - PAIN [None]
  - NAUSEA [None]
  - OBESITY [None]
